FAERS Safety Report 4783580-6 (Version None)
Quarter: 2005Q3

REPORT INFORMATION
  Report Type: 
  Country: None (occurrence: None)
  Receive Date: 20050928
  Receipt Date: 20050909
  Transmission Date: 20060218
  Serious: Yes (Hospitalization)
  Sender: FDA-Public Use
  Company Number: JP_050907509

PATIENT
  Age: 37 Year
  Sex: Female

DRUGS (1)
  1. HUMALOG MIX 50/50 [Suspect]
     Indication: DIABETES MELLITUS INSULIN-DEPENDENT

REACTIONS (4)
  - ABDOMINAL PAIN [None]
  - HYPOGLYCAEMIA [None]
  - INTENTIONAL MISUSE [None]
  - OVERDOSE [None]
